FAERS Safety Report 8277518-7 (Version None)
Quarter: 2012Q2

REPORT INFORMATION
  Report Type: 
  Country: None (occurrence: None)
  Receive Date: 20120412
  Receipt Date: 20120409
  Transmission Date: 20120825
  Serious: Yes (Hospitalization, Other)
  Sender: FDA-Public Use
  Company Number: US-TEVA-332296USA

PATIENT
  Sex: Female
  Weight: 68.1 kg

DRUGS (6)
  1. CEFTRIAXONE [Concomitant]
     Indication: INFECTION
  2. ZOLPIDEM TARTRATE [Concomitant]
  3. PROMETHAZINE [Concomitant]
     Route: 042
  4. LORAZEPAM [Concomitant]
     Dosage: 2 MILLIGRAM;
     Route: 048
  5. HYDROMORPHONE HYDROCHLORIDE [Concomitant]
     Indication: PAIN
     Route: 048
  6. FENTORA [Suspect]
     Indication: PAIN
     Route: 002
     Dates: end: 20120402

REACTIONS (6)
  - ENDOSCOPY [None]
  - CATHETER PLACEMENT [None]
  - DRUG PRESCRIBING ERROR [None]
  - HYSTERECTOMY [None]
  - OVERDOSE [None]
  - DEVICE RELATED SEPSIS [None]
